FAERS Safety Report 19403780 (Version 1)
Quarter: 2021Q2

REPORT INFORMATION
  Report Type: Report from Study
  Country: None (occurrence: CA)
  Receive Date: 20210610
  Receipt Date: 20210610
  Transmission Date: 20210717
  Serious: Yes (Hospitalization)
  Sender: FDA-Public Use
  Company Number: CA-ABBVIE-21K-028-3943277-00

PATIENT
  Sex: Female

DRUGS (1)
  1. RINVOQ [Suspect]
     Active Substance: UPADACITINIB
     Indication: PERTHES DISEASE
     Route: 048
     Dates: start: 20210121, end: 20210511

REACTIONS (2)
  - Off label use [Unknown]
  - Back disorder [Unknown]

NARRATIVE: CASE EVENT DATE: 2021
